FAERS Safety Report 11769207 (Version 2)
Quarter: 2015Q4

REPORT INFORMATION
  Report Type: Report from Study
  Country: US (occurrence: US)
  Receive Date: 20151123
  Receipt Date: 20151229
  Transmission Date: 20160304
  Serious: Yes (Other)
  Sender: FDA-Public Use
  Company Number: US-AMGEN-USASL2015121887

PATIENT
  Age: 82 Year
  Sex: Female

DRUGS (21)
  1. CALTRATE                           /00944201/ [Concomitant]
  2. VITAMIN E [Concomitant]
     Active Substance: .ALPHA.-TOCOPHEROL
  3. CELEBREX [Concomitant]
     Active Substance: CELECOXIB
     Dosage: 200 MG, QD
  4. FELODIPINE. [Concomitant]
     Active Substance: FELODIPINE
     Dosage: 10 MG, QD
  5. VALTREX [Concomitant]
     Active Substance: VALACYCLOVIR HYDROCHLORIDE
     Dosage: 500 MG, UNK
  6. PREMARIN [Concomitant]
     Active Substance: ESTROGENS, CONJUGATED
  7. SURFAK [Concomitant]
     Dosage: 240 MG, TWO AT NIGHT
  8. ALLOPURINOL. [Concomitant]
     Active Substance: ALLOPURINOL
     Dosage: 100 MG, QD
  9. PROLIA [Suspect]
     Active Substance: DENOSUMAB
     Indication: OSTEOPOROSIS
     Dosage: UNK
     Route: 065
     Dates: start: 201504
  10. BIOTINE                            /00001702/ [Concomitant]
  11. PLAQUENIL [Concomitant]
     Active Substance: HYDROXYCHLOROQUINE SULFATE
     Dosage: 200 MG, BID
  12. PRILOSEC [Concomitant]
     Active Substance: OMEPRAZOLE MAGNESIUM
     Dosage: 20 MG, QD
  13. TEKTURNA [Concomitant]
     Active Substance: ALISKIREN HEMIFUMARATE
     Indication: BLOOD PRESSURE MEASUREMENT
     Dosage: 300 MG, UNK
  14. NPLATE [Suspect]
     Active Substance: ROMIPLOSTIM
     Indication: PRODUCT USED FOR UNKNOWN INDICATION
     Dosage: UNK
     Route: 065
  15. ZOLOFT [Concomitant]
     Active Substance: SERTRALINE HYDROCHLORIDE
     Dosage: 50 MG, QD
  16. MAGNESIA                           /00123201/ [Concomitant]
     Active Substance: MAGNESIUM HYDROXIDE
  17. ZOCOR [Concomitant]
     Active Substance: SIMVASTATIN
     Dosage: 10 MG, QD
  18. POTASSIUM GLUCONATE [Concomitant]
     Active Substance: POTASSIUM GLUCONATE
     Dosage: 595 MG, QD
  19. POTASSIUM [Concomitant]
     Active Substance: POTASSIUM
     Dosage: 20 MEQ, QD
  20. LASIX [Concomitant]
     Active Substance: FUROSEMIDE
     Dosage: 20 MG, QD
  21. MYRBETRIQ [Concomitant]
     Active Substance: MIRABEGRON
     Dosage: 50 MG, QD

REACTIONS (2)
  - Platelet count abnormal [Unknown]
  - Device failure [Unknown]

NARRATIVE: CASE EVENT DATE: 201505
